FAERS Safety Report 14338270 (Version 4)
Quarter: 2018Q2

REPORT INFORMATION
  Report Type: Report from Study
  Country: None (occurrence: NL)
  Receive Date: 20171229
  Receipt Date: 20180403
  Transmission Date: 20180711
  Serious: Yes (Hospitalization, Other)
  Sender: FDA-Public Use
  Company Number: NL-ABBVIE-17K-114-2199912-00

PATIENT
  Age: 71 Year
  Sex: Male
  Weight: 66.6 kg

DRUGS (32)
  1. PARACETAMOL [Concomitant]
     Active Substance: ACETAMINOPHEN
     Route: 048
     Dates: start: 2018, end: 20180124
  2. OMECAT [Concomitant]
     Indication: PRODUCT USED FOR UNKNOWN INDICATION
     Route: 048
     Dates: start: 20180116, end: 20180124
  3. OMEPRAZOLE. [Concomitant]
     Active Substance: OMEPRAZOLE
     Indication: PRODUCT USED FOR UNKNOWN INDICATION
     Route: 048
     Dates: start: 20180129
  4. OMEPRAZOLE. [Concomitant]
     Active Substance: OMEPRAZOLE
     Route: 048
     Dates: start: 20180116, end: 20180117
  5. DUTASTERIDE. [Concomitant]
     Active Substance: DUTASTERIDE
     Indication: PRODUCT USED FOR UNKNOWN INDICATION
     Dosage: 0.5/0.4MG
     Route: 048
     Dates: start: 20170706
  6. PARACETAMOL [Concomitant]
     Active Substance: ACETAMINOPHEN
     Indication: PRODUCT USED FOR UNKNOWN INDICATION
     Route: 048
     Dates: start: 20180111, end: 20180114
  7. PARACETAMOL [Concomitant]
     Active Substance: ACETAMINOPHEN
     Dosage: 4 TIMES DAILY IF NECESSARY
     Route: 048
     Dates: start: 20180205
  8. TRAMADOLE [Concomitant]
     Active Substance: TRAMADOL HYDROCHLORIDE
     Dosage: 3 TIMES DAILY IF NECESSARY
     Route: 048
     Dates: start: 20180116, end: 20180117
  9. DUODOPA [Suspect]
     Active Substance: CARBIDOPA\LEVODOPA
     Dosage: MD: 5.0, CD: 6.7, ED: 2.5, CND: 4.7, END: 2.5
     Route: 050
  10. PARACETAMOL [Concomitant]
     Active Substance: ACETAMINOPHEN
     Route: 048
     Dates: start: 20180124, end: 20180205
  11. OXCARBAZEPINE. [Concomitant]
     Active Substance: OXCARBAZEPINE
     Route: 048
     Dates: end: 20180117
  12. DALTEPARIN [Concomitant]
     Active Substance: DALTEPARIN
     Indication: PRODUCT USED FOR UNKNOWN INDICATION
     Dosage: 2500IU=0.2ML
     Route: 058
     Dates: start: 20180123, end: 20180130
  13. LEVODOPA/CARBIDOPA [Concomitant]
     Active Substance: CARBIDOPA\LEVODOPA
     Dosage: 100/25MG 7 TIMES DAILY IF NECESSARY
     Route: 048
     Dates: start: 20180116, end: 20180116
  14. GLYCOPYRRONIUM [Concomitant]
     Active Substance: GLYCOPYRRONIUM
     Route: 048
     Dates: start: 2017, end: 20180115
  15. MACROLGOL [Concomitant]
     Route: 048
     Dates: start: 20180130, end: 20180205
  16. MACROLGOL [Concomitant]
     Route: 048
     Dates: start: 2018
  17. OXCARBAZEPINE. [Concomitant]
     Active Substance: OXCARBAZEPINE
     Indication: PRODUCT USED FOR UNKNOWN INDICATION
     Route: 048
     Dates: start: 20170706
  18. LEVODOPA/CARBIDOPA [Concomitant]
     Active Substance: CARBIDOPA\LEVODOPA
     Indication: PRODUCT USED FOR UNKNOWN INDICATION
     Dosage: 50/12.5MG  6 TIMES DAILY IF NECESSARY
     Route: 048
     Dates: start: 20180110, end: 20180115
  19. AMOXICILLIN/CLAVULANIC ACID [Concomitant]
     Active Substance: AMOXICILLIN\CLAVULANIC ACID
     Indication: PRODUCT USED FOR UNKNOWN INDICATION
     Dosage: 500/125MG
     Route: 048
     Dates: start: 20180116, end: 20180117
  20. TRAMADOLE [Concomitant]
     Active Substance: TRAMADOL HYDROCHLORIDE
     Indication: PRODUCT USED FOR UNKNOWN INDICATION
     Dosage: 3 TIMES DAILY IF NECESSARY
     Route: 048
     Dates: start: 20180111, end: 20180114
  21. TRAMADOLE [Concomitant]
     Active Substance: TRAMADOL HYDROCHLORIDE
     Dosage: 3 TIMES DAILY IF NECESSARY
     Route: 048
     Dates: start: 201801, end: 20180205
  22. DUODOPA [Suspect]
     Active Substance: CARBIDOPA\LEVODOPA
     Dosage: MD 5, CD 6.8, ED 2.5, CND 4.8, END 2.5
     Route: 050
     Dates: start: 20111102
  23. GLYCOPYRRONIUM [Concomitant]
     Active Substance: GLYCOPYRRONIUM
     Indication: PRODUCT USED FOR UNKNOWN INDICATION
     Route: 048
     Dates: start: 20170710, end: 2017
  24. BACTROBAN [Concomitant]
     Active Substance: MUPIROCIN\MUPIROCIN CALCIUM
     Indication: PRODUCT USED FOR UNKNOWN INDICATION
     Dosage: 20MG/G TWICE DAILY ACCORDING SCHEDULE
     Route: 003
     Dates: start: 20171216, end: 20171221
  25. AMOXICILLIN/CLAVULANIC ACID [Concomitant]
     Active Substance: AMOXICILLIN\CLAVULANIC ACID
     Dosage: 500/125MG
     Route: 048
     Dates: start: 20180117, end: 20180123
  26. DUODOPA [Suspect]
     Active Substance: CARBIDOPA\LEVODOPA
     Indication: PARKINSON^S DISEASE
     Dosage: MD: 7.0, CD: 6.8, ED: 2.5, CND: 4.7, END: 2.5
     Route: 050
     Dates: start: 20111031, end: 2011
  27. MACROLGOL [Concomitant]
     Indication: PRODUCT USED FOR UNKNOWN INDICATION
     Route: 048
     Dates: start: 20170706, end: 20180117
  28. MACROLGOL [Concomitant]
     Route: 048
     Dates: start: 2018, end: 20180130
  29. MACROLGOL [Concomitant]
     Route: 048
     Dates: start: 20180205, end: 2018
  30. PARACETAMOL [Concomitant]
     Active Substance: ACETAMINOPHEN
     Route: 048
     Dates: start: 20180116, end: 20180117
  31. CLOBAZAM [Concomitant]
     Active Substance: CLOBAZAM
     Indication: PRODUCT USED FOR UNKNOWN INDICATION
     Route: 048
     Dates: start: 20170706
  32. OMECAT [Concomitant]
     Route: 048
     Dates: start: 20180124, end: 20180129

REACTIONS (10)
  - Embedded device [Unknown]
  - Embedded device [Recovered/Resolved]
  - Embedded device [Recovered/Resolved]
  - Muscle rigidity [Not Recovered/Not Resolved]
  - Freezing phenomenon [Recovering/Resolving]
  - Inguinal hernia [Unknown]
  - Diverticulum [Unknown]
  - Bradykinesia [Not Recovered/Not Resolved]
  - Wound abscess [Recovering/Resolving]
  - Constipation [Not Recovered/Not Resolved]

NARRATIVE: CASE EVENT DATE: 2013
